FAERS Safety Report 23283795 (Version 1)
Quarter: 2023Q4

REPORT INFORMATION
  Report Type: Spontaneous
  Country: FR (occurrence: FR)
  Receive Date: 20231211
  Receipt Date: 20231211
  Transmission Date: 20240110
  Serious: Yes (Hospitalization)
  Sender: FDA-Public Use
  Company Number: None

PATIENT
  Age: 68 Year
  Sex: Male
  Weight: 100 kg

DRUGS (23)
  1. KEPPRA [Suspect]
     Active Substance: LEVETIRACETAM
     Indication: Epilepsy
     Dosage: 1500 MILLIGRAM
     Route: 048
     Dates: start: 20200520, end: 202310
  2. KEPPRA [Suspect]
     Active Substance: LEVETIRACETAM
     Dosage: 1000 MILLIGRAM
     Route: 048
     Dates: start: 202310
  3. FOTEMUSTINE [Suspect]
     Active Substance: FOTEMUSTINE
     Indication: Astrocytoma
     Dosage: POWDER FOR CONCENTRATE FOR SOLUTION FOR INFUSION, J1 / J15 / J29 / J43 / J57, CYCLICAL
     Route: 042
     Dates: start: 20230110, end: 20230417
  4. FOTEMUSTINE [Suspect]
     Active Substance: FOTEMUSTINE
     Dosage: POWDER FOR CONCENTRATE FOR SOLUTION FOR INFUSION, J1 / J22 / J43, CYCLICAL
     Route: 042
     Dates: start: 20230627, end: 20230919
  5. LOMUSTINE [Suspect]
     Active Substance: LOMUSTINE
     Indication: Astrocytoma
     Dosage: J1
     Route: 048
     Dates: start: 20230502, end: 20230502
  6. LOMUSTINE [Suspect]
     Active Substance: LOMUSTINE
     Dosage: J1
     Route: 048
     Dates: start: 20210610, end: 20220411
  7. MVASI [Suspect]
     Active Substance: BEVACIZUMAB-AWWB
     Indication: Astrocytoma
     Dosage: CONCENTRATE FOR SOLUTION FOR INFUSION, CYCLICAL, J1 / J15 / J29 / J43 / J57
     Route: 042
     Dates: start: 20220110, end: 20230417
  8. MVASI [Suspect]
     Active Substance: BEVACIZUMAB-AWWB
     Dosage: CONCENTRATE FOR SOLUTION FOR INFUSION, CYCLICAL, J1 / J22 / J43
     Route: 042
     Dates: start: 20230613, end: 20230919
  9. MVASI [Suspect]
     Active Substance: BEVACIZUMAB-AWWB
     Dosage: CONCENTRATE FOR SOLUTION FOR INFUSION, CYCLICAL, J1 / J15 / J29
     Route: 042
     Dates: start: 20230502, end: 20230530
  10. MVASI [Suspect]
     Active Substance: BEVACIZUMAB-AWWB
     Dosage: CONCENTRATE FOR SOLUTION FOR INFUSION, CYCLICAL, J1 / J15 / J29
     Route: 042
     Dates: start: 20210610, end: 20220602
  11. CORDARONE [Suspect]
     Active Substance: AMIODARONE HYDROCHLORIDE
     Indication: Atrial fibrillation
     Dosage: SCORED TABLET
     Route: 048
     Dates: start: 202005, end: 20231010
  12. PANTOPRAZOLE [Concomitant]
     Active Substance: PANTOPRAZOLE
     Indication: Product used for unknown indication
     Dosage: 40 MILLIGRAM, ONCE DAILY (QD)
     Route: 048
  13. VIMPAT [Concomitant]
     Active Substance: LACOSAMIDE
     Indication: Epilepsy
     Dosage: 200 MILLIGRAM
     Route: 048
  14. ACETAMINOPHEN [Concomitant]
     Active Substance: ACETAMINOPHEN
     Indication: Pain
     Route: 048
  15. CLOBAZAM [Concomitant]
     Active Substance: CLOBAZAM
     Indication: Epilepsy
     Dosage: 10 MILLIGRAM, ONCE DAILY (QD), SCORED TABLETS
     Route: 048
  16. CALCIUM CARBONATE [Concomitant]
     Active Substance: CALCIUM CARBONATE
     Indication: Mineral supplementation
     Dosage: 500 MILLIGRAM, ONCE DAILY (QD)
     Route: 048
  17. DULOXETINE HYDROCHLORIDE [Concomitant]
     Active Substance: DULOXETINE HYDROCHLORIDE
     Indication: Depression
     Dosage: 60 MILLIGRAM, ONCE DAILY (QD)
     Route: 048
  18. BISOPROLOL FUMARATE [Concomitant]
     Active Substance: BISOPROLOL FUMARATE
     Indication: Hypertension
     Dosage: 2.5 MILLIGRAM
     Route: 048
  19. POTASSIUM CHLORIDE [Concomitant]
     Active Substance: POTASSIUM CHLORIDE
     Indication: Hypokalaemia
     Dosage: 1 DOSAGE FORM
     Route: 048
  20. LEVOTHYROXINE [Concomitant]
     Active Substance: LEVOTHYROXINE
     Indication: Hypothyroidism
     Dosage: 1 DOSAGE FORM
     Route: 048
  21. VITAMIN D2 [Concomitant]
     Active Substance: ERGOCALCIFEROL
     Indication: Vitamin supplementation
     Dosage: 400 INTERNATIONAL UNIT, ONCE DAILY (QD)
     Route: 048
  22. XARELTO [Concomitant]
     Active Substance: RIVAROXABAN
     Indication: Atrial fibrillation
     Dosage: FILMCOATED TABLET, 20 MILLIGRAM, ONCE DAILY (QD)
     Route: 048
  23. TAMSULOSIN HYDROCHLORIDE [Concomitant]
     Active Substance: TAMSULOSIN HYDROCHLORIDE
     Indication: Benign prostatic hyperplasia
     Dosage: 0.4 MILLIGRAM, ONCE DAILY (QD)
     Route: 048

REACTIONS (1)
  - Lung disorder [Recovering/Resolving]

NARRATIVE: CASE EVENT DATE: 20230501
